FAERS Safety Report 15658528 (Version 1)
Quarter: 2018Q4

REPORT INFORMATION
  Report Type: Report from Study
  Country: US (occurrence: US)
  Receive Date: 20181126
  Receipt Date: 20181126
  Transmission Date: 20190205
  Serious: Yes (Hospitalization, Other)
  Sender: FDA-Public Use
  Company Number: US-GILEAD-2018-0376417

PATIENT
  Age: 74 Year
  Sex: Male

DRUGS (17)
  1. DIPHENHYDRAMINE. [Concomitant]
     Active Substance: DIPHENHYDRAMINE
  2. METHOTREXATE. [Concomitant]
     Active Substance: METHOTREXATE
  3. TRACLEER [BOSENTAN MONOHYDRATE] [Concomitant]
  4. VITAMIN B12 [Concomitant]
     Active Substance: CYANOCOBALAMIN
  5. FOLIC ACID. [Concomitant]
     Active Substance: FOLIC ACID
  6. AMBRISENTAN [Suspect]
     Active Substance: AMBRISENTAN
     Indication: PULMONARY ARTERIAL HYPERTENSION
     Dosage: 10 MG, QD
     Route: 065
     Dates: start: 20171222
  7. DOXYCYCLINE. [Concomitant]
     Active Substance: DOXYCYCLINE
  8. FLUTICASONE. [Concomitant]
     Active Substance: FLUTICASONE
  9. REMODULIN [Concomitant]
     Active Substance: TREPROSTINIL
  10. ADCIRCA [Concomitant]
     Active Substance: TADALAFIL
     Indication: PULMONARY ARTERIAL HYPERTENSION
     Dosage: 10 MG, QD
     Route: 065
     Dates: start: 20171222
  11. DULOXETINE. [Concomitant]
     Active Substance: DULOXETINE
  12. NIFEDICAL XL [Concomitant]
     Active Substance: NIFEDIPINE
  13. OSTEO BI-FLEX [CHONDROITIN SULFATE;GLUCOSAMINE HYDROCHLORIDE] [Concomitant]
  14. PREDNISONE. [Concomitant]
     Active Substance: PREDNISONE
  15. RANITIDINE. [Concomitant]
     Active Substance: RANITIDINE
  16. WARFARIN [Concomitant]
     Active Substance: WARFARIN
  17. RITUXAN [Concomitant]
     Active Substance: RITUXIMAB

REACTIONS (1)
  - Pneumonia [Not Recovered/Not Resolved]

NARRATIVE: CASE EVENT DATE: 20181114
